FAERS Safety Report 7683560-7 (Version None)
Quarter: 2011Q3

REPORT INFORMATION
  Report Type: 
  Country: None (occurrence: None)
  Receive Date: 20110815
  Receipt Date: 20110804
  Transmission Date: 20111222
  Serious: Yes (Other)
  Sender: FDA-Public Use
  Company Number: CA-JNJFOC-20110803800

PATIENT
  Sex: Male
  Weight: 72.5 kg

DRUGS (4)
  1. TRAZODONE HCL [Concomitant]
  2. REMICADE [Suspect]
     Indication: CROHN'S DISEASE
     Route: 042
     Dates: start: 20101118
  3. TYLENOL W/ CODEINE NO. 3 [Concomitant]
     Dosage: 2, EVERY 4 HOURS
  4. CODEINE CONTIN [Concomitant]

REACTIONS (2)
  - DIARRHOEA [None]
  - ABDOMINAL PAIN [None]
